FAERS Safety Report 5242224-X (Version None)
Quarter: 2007Q1

REPORT INFORMATION
  Report Type: 
  Country: None (occurrence: None)
  Receive Date: 20070212
  Receipt Date: 20070212
  Transmission Date: 20070707
  Serious: Yes (Death)
  Sender: FDA-Public Use
  Company Number: None

PATIENT
  Age: 79 Year
  Sex: Male

DRUGS (3)
  1. ASPIRIN [Suspect]
     Indication: CEREBROVASCULAR ACCIDENT
  2. HEPARIN [Suspect]
     Indication: PULMONARY EMBOLISM
  3. CLOPIDOGREL [Suspect]

REACTIONS (6)
  - CAROTID ARTERY STENOSIS [None]
  - CEREBRAL HAEMORRHAGE [None]
  - ISCHAEMIC STROKE [None]
  - POST PROCEDURAL COMPLICATION [None]
  - POST PROCEDURAL HAEMATOMA [None]
  - PULMONARY EMBOLISM [None]
